FAERS Safety Report 16766664 (Version 2)
Quarter: 2019Q4

REPORT INFORMATION
  Report Type: Spontaneous
  Country: PL (occurrence: PL)
  Receive Date: 20190903
  Receipt Date: 20191226
  Transmission Date: 20200122
  Serious: Yes (Other)
  Sender: FDA-Public Use
  Company Number: PL-MYLANLABS-2019M1081222

PATIENT
  Age: 72 Year
  Sex: Male

DRUGS (13)
  1. FINASTERIDE. [Suspect]
     Active Substance: FINASTERIDE
     Indication: MICTURITION URGENCY
  2. SOLIFENACIN [Suspect]
     Active Substance: SOLIFENACIN
     Indication: PRODUCT USED FOR UNKNOWN INDICATION
     Dosage: UNK
     Route: 065
  3. FINASTERIDE. [Suspect]
     Active Substance: FINASTERIDE
     Indication: POLYURIA
     Dosage: UNK
     Route: 065
  4. FINASTERIDE. [Suspect]
     Active Substance: FINASTERIDE
     Indication: BENIGN PROSTATIC HYPERPLASIA
  5. TAMSULOSIN [Suspect]
     Active Substance: TAMSULOSIN
     Indication: NOCTURIA
  6. FINASTERIDE. [Suspect]
     Active Substance: FINASTERIDE
     Indication: LOWER URINARY TRACT SYMPTOMS
  7. TAMSULOSIN [Suspect]
     Active Substance: TAMSULOSIN
     Indication: MICTURITION URGENCY
     Dosage: UNK
     Route: 065
  8. TAMSULOSIN [Suspect]
     Active Substance: TAMSULOSIN
     Indication: POLYURIA
  9. TAMSULOSIN [Suspect]
     Active Substance: TAMSULOSIN
     Indication: LOWER URINARY TRACT SYMPTOMS
  10. TAMSULOSIN [Suspect]
     Active Substance: TAMSULOSIN
     Indication: BENIGN PROSTATIC HYPERPLASIA
  11. FINASTERIDE. [Suspect]
     Active Substance: FINASTERIDE
     Indication: NOCTURIA
  12. PRESTARIUM                         /00790701/ [Concomitant]
     Active Substance: PERINDOPRIL
     Indication: HYPERTENSION
     Dosage: UNK
     Route: 065
  13. TIALORID                           /00206601/ [Concomitant]
     Indication: HYPERTENSION
     Dosage: UNK
     Route: 065

REACTIONS (3)
  - Obesity [Unknown]
  - Drug ineffective [Unknown]
  - Bladder cancer [Unknown]
